FAERS Safety Report 9160815 (Version 1)
Quarter: 2013Q1

REPORT INFORMATION
  Report Type: Spontaneous
  Country: US (occurrence: US)
  Receive Date: 20130313
  Receipt Date: 20130313
  Transmission Date: 20140127
  Serious: No
  Sender: FDA-Public Use
  Company Number: US-ASTRAZENECA-2013SE08479

PATIENT
  Age: 87 Year
  Sex: Female
  Weight: 63.5 kg

DRUGS (6)
  1. CRESTOR [Suspect]
     Indication: BLOOD CHOLESTEROL INCREASED
     Route: 048
     Dates: start: 201110
  2. NORVASC [Concomitant]
  3. AMBIEN [Concomitant]
  4. VITAMIN B12 [Concomitant]
  5. COQ10 [Concomitant]
  6. PEPCID [Concomitant]

REACTIONS (3)
  - Pain [Unknown]
  - Rash [Not Recovered/Not Resolved]
  - Urticaria [Not Recovered/Not Resolved]
